FAERS Safety Report 12072770 (Version 2)
Quarter: 2016Q3

REPORT INFORMATION
  Report Type: Spontaneous
  Country: IT (occurrence: IT)
  Receive Date: 20160212
  Receipt Date: 20160718
  Transmission Date: 20161109
  Serious: Yes (Hospitalization, Other)
  Sender: FDA-Public Use
  Company Number: IT-AMGEN-ITASP2016016171

PATIENT
  Age: 78 Year
  Sex: Female

DRUGS (6)
  1. DIBASE [Concomitant]
     Active Substance: CHOLECALCIFEROL
     Dosage: 2.5 ML(25.000 UL), UNK
  2. ACTONEL [Suspect]
     Active Substance: RISEDRONATE SODIUM
     Indication: OSTEOPOROSIS
     Dosage: 150 MG, QMO
     Route: 048
     Dates: start: 20131118, end: 20150218
  3. NORVASC [Concomitant]
     Active Substance: AMLODIPINE BESYLATE
     Dosage: 10 MG, UNK
  4. PROLIA [Suspect]
     Active Substance: DENOSUMAB
     Indication: OSTEOPOROSIS POSTMENOPAUSAL
     Dosage: 60 MG/ML, Q6MO(ANNUALLY)
     Route: 058
     Dates: start: 20150402, end: 20151002
  5. CALCIO SAVIO [Concomitant]
     Dosage: 2500 MG, UNK
  6. LOBIVON [Concomitant]
     Active Substance: NEBIVOLOL HYDROCHLORIDE
     Dosage: 5 MG, UNK

REACTIONS (1)
  - Osteonecrosis of jaw [Unknown]

NARRATIVE: CASE EVENT DATE: 20160119
